FAERS Safety Report 21249790 (Version 1)
Quarter: 2022Q3

REPORT INFORMATION
  Report Type: Spontaneous
  Country: KR (occurrence: None)
  Receive Date: 20220824
  Receipt Date: 20220824
  Transmission Date: 20221027
  Serious: Yes (Death)
  Sender: FDA-Public Use
  Company Number: 2022A293901

PATIENT

DRUGS (2)
  1. OSIMERTINIB [Suspect]
     Active Substance: OSIMERTINIB
     Indication: Non-small cell lung cancer
     Route: 048
  2. GEFITINIB [Suspect]
     Active Substance: GEFITINIB
     Indication: Non-small cell lung cancer
     Route: 048

REACTIONS (1)
  - Death [Fatal]
